FAERS Safety Report 12603029 (Version 3)
Quarter: 2016Q3

REPORT INFORMATION
  Report Type: Report from Study
  Country: CO (occurrence: CO)
  Receive Date: 20160728
  Receipt Date: 20160919
  Transmission Date: 20161109
  Serious: Yes (Life-Threatening)
  Sender: FDA-Public Use
  Company Number: PHHY2016CO097432

PATIENT
  Age: 70 Year
  Sex: Female
  Weight: 58 kg

DRUGS (8)
  1. OMEPRAZOLE. [Concomitant]
     Active Substance: OMEPRAZOLE
     Indication: PRODUCT USED FOR UNKNOWN INDICATION
     Route: 065
  2. MOVIDOL [Concomitant]
     Indication: DISLOCATION OF VERTEBRA
  3. ACETAMINOPHEN. [Concomitant]
     Active Substance: ACETAMINOPHEN
     Indication: ARTHRALGIA
     Dosage: 500 MG, BID
     Route: 048
  4. TASIGNA [Suspect]
     Active Substance: NILOTINIB
     Indication: CHRONIC MYELOID LEUKAEMIA
     Dosage: 200 MG, BID
     Route: 048
     Dates: start: 2010
  5. TASIGNA [Suspect]
     Active Substance: NILOTINIB
     Dosage: 200 MG, BID (IN THE MORNING AND AT NIGHT)
     Route: 048
     Dates: start: 20160706, end: 20160830
  6. MELOXICAM. [Concomitant]
     Active Substance: MELOXICAM
     Indication: DISLOCATION OF VERTEBRA
  7. MOVIDOL [Concomitant]
     Indication: LIMB DISCOMFORT
     Dosage: PRN (ONLY WHEN SHE FEEL THE DISTURBANCE)
     Route: 065
  8. MELOXICAM. [Concomitant]
     Active Substance: MELOXICAM
     Indication: LIMB DISCOMFORT
     Dosage: PRN (ONLY WHEN SHE FEEL THE DISTURBANCE)
     Route: 065

REACTIONS (12)
  - Cold sweat [Not Recovered/Not Resolved]
  - Abdominal pain upper [Not Recovered/Not Resolved]
  - Yellow skin [Recovered/Resolved]
  - Decreased appetite [Unknown]
  - Headache [Not Recovered/Not Resolved]
  - Peripheral coldness [Not Recovered/Not Resolved]
  - Dehydration [Unknown]
  - Rash generalised [Unknown]
  - Weight decreased [Unknown]
  - Drug intolerance [Unknown]
  - Platelet count decreased [Unknown]
  - Nausea [Not Recovered/Not Resolved]

NARRATIVE: CASE EVENT DATE: 20160812
